FAERS Safety Report 6016462-2 (Version None)
Quarter: 2008Q4

REPORT INFORMATION
  Report Type: 
  Country: None (occurrence: None)
  Receive Date: 20081222
  Receipt Date: 20081215
  Transmission Date: 20090506
  Serious: Yes (Hospitalization)
  Sender: FDA-Public Use
  Company Number: FR-ASTRAZENECA-2008CG01846

PATIENT
  Age: 88 Year
  Sex: Female

DRUGS (4)
  1. ATACAND [Suspect]
     Route: 048
  2. HERBAL TEA WITH ALTHAEA OFFICINALIS EXTRACT [Suspect]
     Route: 048
  3. CHRONADALATE [Concomitant]
  4. PLAVIX [Concomitant]

REACTIONS (3)
  - ABDOMINAL PAIN [None]
  - LIPASE INCREASED [None]
  - PANCREATITIS ACUTE [None]
